FAERS Safety Report 11026173 (Version 3)
Quarter: 2015Q4

REPORT INFORMATION
  Report Type: Report from Study
  Country: BE (occurrence: BE)
  Receive Date: 20150414
  Receipt Date: 20151211
  Transmission Date: 20160304
  Serious: Yes (Hospitalization, Other)
  Sender: FDA-Public Use
  Company Number: BE-ABBVIE-15P-013-1374428-00

PATIENT
  Sex: Female

DRUGS (6)
  1. DUODOPA [Suspect]
     Active Substance: CARBIDOPA\LEVODOPA
     Dosage: AM DOSE=7ML, CD=2.7ML/H FOR 16HRS AND ED=2ML
     Route: 050
     Dates: start: 20150914
  2. DUODOPA [Suspect]
     Active Substance: CARBIDOPA\LEVODOPA
     Dosage: DOSAGE CONTINUOUSLY MONITORED AND ADJUSTED
     Route: 050
     Dates: start: 20150731, end: 20150914
  3. PROLOPA [Concomitant]
     Active Substance: BENSERAZIDE\LEVODOPA
     Indication: PARKINSON^S DISEASE
     Dosage: FORM STRENGTH: 200MG/50MG;
  4. DUODOPA [Suspect]
     Active Substance: CARBIDOPA\LEVODOPA
     Indication: PARKINSON^S DISEASE
     Dosage: AM: 8ML; CD: 1.3ML/H FOR 16HRS; ED: 1ML
     Route: 050
     Dates: start: 20110912, end: 20110929
  5. DUODOPA [Suspect]
     Active Substance: CARBIDOPA\LEVODOPA
     Dosage: AM: 7ML; CD: 2.7ML/H FOR 16HRS; ED: 1.8ML
     Route: 050
     Dates: start: 20150313, end: 20150731
  6. DUODOPA [Suspect]
     Active Substance: CARBIDOPA\LEVODOPA
     Dosage: DOSAGES CONTINUOUSLY MONITORED AND ADJUSTED
     Route: 050
     Dates: start: 20110929, end: 20150313

REACTIONS (10)
  - Joint injury [Unknown]
  - Cholecystectomy [Unknown]
  - Back pain [Unknown]
  - Spinal osteoarthritis [Unknown]
  - Spinal compression fracture [Unknown]
  - Fall [Unknown]
  - Vertigo positional [Unknown]
  - Mobility decreased [Unknown]
  - Anxiety [Unknown]
  - Dizziness [Unknown]
